FAERS Safety Report 5810968-4 (Version None)
Quarter: 2008Q3

REPORT INFORMATION
  Report Type: 
  Country: None (occurrence: None)
  Receive Date: 20080716
  Receipt Date: 20080710
  Transmission Date: 20090109
  Serious: Yes (Death, Hospitalization)
  Sender: FDA-Public Use
  Company Number: PHFR2006GB03301

PATIENT
  Age: 13 Month
  Sex: Male

DRUGS (5)
  1. PIMECROLIMUS [Suspect]
     Indication: ECZEMA
     Dosage: UNK, BID
     Route: 061
     Dates: start: 20060501
  2. DERMOL [Concomitant]
     Route: 065
  3. HYDROCORTISONE [Concomitant]
     Dosage: 1 %, UNK
  4. VALLERGAN [Concomitant]
     Indication: ECZEMA
     Dosage: 7.5 MG, QD
     Route: 065
     Dates: start: 20060301
  5. FUROSEMIDE [Concomitant]
     Indication: URINARY RETENTION

REACTIONS (12)
  - BLOOD PRESSURE DECREASED [None]
  - CARDIAC ARREST [None]
  - CONVULSION [None]
  - MECHANICAL VENTILATION [None]
  - PETECHIAE [None]
  - PNEUMOCOCCAL SEPSIS [None]
  - PUPIL FIXED [None]
  - PUPILLARY REFLEX IMPAIRED [None]
  - PYREXIA [None]
  - SUBARACHNOID HAEMORRHAGE [None]
  - SURGERY [None]
  - VARICELLA [None]
